FAERS Safety Report 4478572-0 (Version None)
Quarter: 2004Q4

REPORT INFORMATION
  Report Type: 
  Country: None (occurrence: None)
  Receive Date: 20041019
  Receipt Date: 20041012
  Transmission Date: 20050328
  Serious: Yes (Other)
  Sender: FDA-Public Use
  Company Number: GB-MERCK-0410GBR00134

PATIENT
  Age: 59 Year
  Sex: Female
  Weight: 70 kg

DRUGS (4)
  1. ZETIA [Suspect]
     Indication: LOW DENSITY LIPOPROTEIN INCREASED
     Route: 048
     Dates: start: 20040701, end: 20040729
  2. CLOPIDOGREL BISULFATE [Concomitant]
     Indication: CAROTID ARTERY STENOSIS
     Route: 065
  3. ASPIRIN [Concomitant]
     Indication: CAROTID ARTERY STENOSIS
     Route: 065
  4. OMEPRAZOLE [Concomitant]
     Route: 065

REACTIONS (4)
  - ABDOMINAL DISTENSION [None]
  - ABDOMINAL PAIN UPPER [None]
  - CONSTIPATION [None]
  - DYSPEPSIA [None]
